FAERS Safety Report 9344598 (Version 1)
Quarter: 2013Q2

REPORT INFORMATION
  Report Type: Spontaneous
  Country: US (occurrence: None)
  Receive Date: 20130611
  Receipt Date: 20130611
  Transmission Date: 20140414
  Serious: Yes (Life-Threatening, Hospitalization)
  Sender: FDA-Public Use
  Company Number: None

PATIENT
  Age: 65 Year
  Sex: Male
  Weight: 95 kg

DRUGS (1)
  1. COLCHICINE [Suspect]
     Indication: GOUT
     Dates: start: 20120203, end: 20130120

REACTIONS (10)
  - Rhabdomyolysis [None]
  - Influenza like illness [None]
  - Vomiting [None]
  - Mental status changes [None]
  - Muscle spasms [None]
  - Asthenia [None]
  - Hypophagia [None]
  - Hyperkalaemia [None]
  - Bradycardia [None]
  - Renal failure acute [None]
